FAERS Safety Report 7381279-3 (Version None)
Quarter: 2011Q1

REPORT INFORMATION
  Report Type: 
  Country: None (occurrence: None)
  Receive Date: 20110329
  Receipt Date: 20100304
  Transmission Date: 20110831
  Serious: Yes (Other)
  Sender: FDA-Public Use
  Company Number: PHHY2010DE18126

PATIENT
  Sex: Female

DRUGS (3)
  1. EXTAVIA [Suspect]
     Indication: MULTIPLE SCLEROSIS
     Dosage: 0.25ML TO 0.75ML, QOD
     Route: 058
     Dates: start: 20100222, end: 20100401
  2. IBUPROFEN [Concomitant]
  3. HOMEOPATHIC PREPARATIONS [Concomitant]
     Dosage: UNK,UNK

REACTIONS (8)
  - INFLUENZA LIKE ILLNESS [None]
  - LYMPHADENOPATHY [None]
  - PARAESTHESIA [None]
  - GASTRITIS [None]
  - BACK PAIN [None]
  - DYSPNOEA [None]
  - HEPATIC ENZYME INCREASED [None]
  - HEADACHE [None]
